FAERS Safety Report 9330744 (Version 1)
Quarter: 2013Q2

REPORT INFORMATION
  Report Type: Spontaneous
  Country: CA (occurrence: CA)
  Receive Date: 20130605
  Receipt Date: 20130605
  Transmission Date: 20140414
  Serious: Yes (Other)
  Sender: FDA-Public Use
  Company Number: CA-JNJFOC-20130519804

PATIENT
  Sex: Male

DRUGS (2)
  1. ROGAINE FOR MEN 5% [Suspect]
     Route: 065
  2. ROGAINE FOR MEN 5% [Suspect]
     Indication: PRODUCT USED FOR UNKNOWN INDICATION
     Route: 065

REACTIONS (2)
  - Jaundice [Unknown]
  - Hypertension [Unknown]
